FAERS Safety Report 12251912 (Version 1)
Quarter: 2016Q2

REPORT INFORMATION
  Report Type: Spontaneous
  Country: US (occurrence: US)
  Receive Date: 20160411
  Receipt Date: 20160411
  Transmission Date: 20160815
  Serious: Yes (Other)
  Sender: FDA-Public Use
  Company Number: US-PFIZER INC-2016188249

PATIENT
  Age: 54 Year
  Sex: Male

DRUGS (4)
  1. CRIZOTINIB [Suspect]
     Active Substance: CRIZOTINIB
     Indication: ANGIOSARCOMA METASTATIC
     Dosage: 250 MG, 2X/DAY
     Route: 048
     Dates: start: 20150903
  2. COUMADIN [Concomitant]
     Active Substance: WARFARIN SODIUM
  3. ENOXAPARIN [Concomitant]
     Active Substance: ENOXAPARIN
  4. HEPARIN [Concomitant]
     Active Substance: HEPARIN SODIUM
     Indication: DISSEMINATED INTRAVASCULAR COAGULATION
     Dosage: LOW DOSE

REACTIONS (9)
  - Oedema peripheral [Recovering/Resolving]
  - Musculoskeletal pain [Unknown]
  - Disease progression [Unknown]
  - Visual impairment [Recovering/Resolving]
  - Photopsia [Recovering/Resolving]
  - Abdominal pain [Unknown]
  - Deep vein thrombosis [Unknown]
  - Product use issue [Unknown]
  - Angiosarcoma metastatic [Unknown]

NARRATIVE: CASE EVENT DATE: 20150903
